FAERS Safety Report 9879729 (Version 2)
Quarter: 2014Q1

REPORT INFORMATION
  Report Type: Spontaneous
  Country: IE (occurrence: IE)
  Receive Date: 20140206
  Receipt Date: 20140328
  Transmission Date: 20141002
  Serious: Yes (Hospitalization)
  Sender: FDA-Public Use
  Company Number: PHHY2014IE011938

PATIENT
  Age: 42 Year
  Sex: Male

DRUGS (7)
  1. MYCOPHENOLIC ACID [Suspect]
     Indication: IMMUNOSUPPRESSION
  2. BASILIXIMAB [Suspect]
     Indication: IMMUNOSUPPRESSION
  3. PREDNISOLONE [Suspect]
     Indication: IMMUNOSUPPRESSION
  4. TACROLIMUS [Suspect]
     Indication: IMMUNOSUPPRESSION
  5. AZATHIOPRINE [Suspect]
     Indication: IMMUNOSUPPRESSION
  6. CISPLATIN [Suspect]
     Indication: GERM CELL CANCER METASTATIC
     Dosage: 20 MG/M2, DAYS 1-5
  7. ETOPOSIDE [Suspect]
     Indication: GERM CELL CANCER METASTATIC
     Dosage: 80 MG/M2, DAY 1-5

REACTIONS (19)
  - Renal failure acute [Unknown]
  - Renal impairment [Unknown]
  - Enterococcus test positive [Unknown]
  - Bone marrow failure [Unknown]
  - Skin ulcer [Unknown]
  - Pancytopenia [Unknown]
  - Neutropenic sepsis [Unknown]
  - Leukopenia [Unknown]
  - Gastrointestinal disorder [Unknown]
  - Lung disorder [Unknown]
  - Cytomegalovirus infection [Unknown]
  - Arteriovenous fistula thrombosis [Unknown]
  - Pulmonary toxicity [Unknown]
  - Toxicity to various agents [Unknown]
  - Germ cell cancer metastatic [Unknown]
  - Metastases to liver [Unknown]
  - Metastases to lung [Unknown]
  - Metastasis [Unknown]
  - Neutropenia [Unknown]
